FAERS Safety Report 21581497 (Version 2)
Quarter: 2023Q2

REPORT INFORMATION
  Report Type: Report from Study
  Country: GB (occurrence: GB)
  Receive Date: 20221111
  Receipt Date: 20230428
  Transmission Date: 20230722
  Serious: Yes (Hospitalization, Other)
  Sender: FDA-Public Use
  Company Number: GB-CELLTRION INC.-2022GB018591

PATIENT

DRUGS (53)
  1. TRASTUZUMAB [Suspect]
     Active Substance: TRASTUZUMAB
     Dosage: 8MG/KG; 1 DOSAGE FORM EVERY 3 WEEKS
     Route: 042
     Dates: start: 20180303, end: 20180303
  2. TRASTUZUMAB [Suspect]
     Active Substance: TRASTUZUMAB
     Dosage: 8MG/KG; 1 DOSAGE FORM EVERY 3 WEEKS
     Route: 042
     Dates: start: 20180303, end: 20180303
  3. TRASTUZUMAB [Suspect]
     Active Substance: TRASTUZUMAB
     Dosage: 6MG/KG; 1 DOSAGE FORM EVERY 3 WEEKS
     Route: 042
     Dates: start: 20180323, end: 20180615
  4. TRASTUZUMAB [Suspect]
     Active Substance: TRASTUZUMAB
     Dosage: 6MG/KG; 1 DOSAGE FORM EVERY 3 WEEKS
     Route: 042
     Dates: start: 20180323, end: 20180615
  5. CAPECITABINE [Suspect]
     Active Substance: CAPECITABINE
     Indication: Breast cancer metastatic
     Dosage: 2000 MG/M2, QD
     Route: 048
     Dates: start: 20211021, end: 20220203
  6. DOCETAXEL [Suspect]
     Active Substance: DOCETAXEL
     Indication: Breast cancer metastatic
     Dosage: 100 MG EVERY 3 WEEKS (CUMULATIVE DOSE TO FIRST REACTION: 7875.992 MG)
     Route: 042
     Dates: start: 20180303, end: 20180322
  7. DOCETAXEL [Suspect]
     Active Substance: DOCETAXEL
     Dosage: 100 MG EVERY 3 WEEKS (CUMULATIVE DOSE TO FIRST REACTION: 7875.992 MG)
     Route: 042
     Dates: start: 20180303, end: 20180322
  8. DOCETAXEL [Suspect]
     Active Substance: DOCETAXEL
     Dosage: 100 MG EVERY 3 WEEKS (CUMULATIVE DOSE TO FIRST REACTION: 7875.992 MG)
     Route: 042
     Dates: start: 20180303, end: 20180322
  9. DOCETAXEL [Suspect]
     Active Substance: DOCETAXEL
     Dosage: 100 MG EVERY 3 WEEKS (CUMULATIVE DOSE TO FIRST REACTION: 7875.992 MG)
     Route: 042
     Dates: start: 20180303, end: 20180322
  10. DOCETAXEL [Suspect]
     Active Substance: DOCETAXEL
     Dosage: 130 MG EVERY 3 WEEKS (CUMULATIVE DOSE TO FIRST REACTION: 10114.98 MG)
     Route: 042
     Dates: start: 20180323, end: 20180524
  11. DOCETAXEL [Suspect]
     Active Substance: DOCETAXEL
     Dosage: 130 MG EVERY 3 WEEKS (CUMULATIVE DOSE TO FIRST REACTION: 10114.98 MG)
     Route: 042
     Dates: start: 20180323, end: 20180524
  12. DOCETAXEL [Suspect]
     Active Substance: DOCETAXEL
     Dosage: 130 MG EVERY 3 WEEKS (CUMULATIVE DOSE TO FIRST REACTION: 10114.98 MG)
     Route: 042
     Dates: start: 20180323, end: 20180524
  13. DOCETAXEL [Suspect]
     Active Substance: DOCETAXEL
     Dosage: 130 MG EVERY 3 WEEKS (CUMULATIVE DOSE TO FIRST REACTION: 10114.98 MG)
     Route: 042
     Dates: start: 20180323, end: 20180524
  14. DOCETAXEL [Suspect]
     Active Substance: DOCETAXEL
     Dosage: 120 MG EVERY 3 WEEKS (CUMULATIVE DOSE TO FIRST REACTION: 8977.143 MG)
     Route: 042
     Dates: start: 20180525, end: 20180525
  15. DOCETAXEL [Suspect]
     Active Substance: DOCETAXEL
     Dosage: 120 MG EVERY 3 WEEKS (CUMULATIVE DOSE TO FIRST REACTION: 8977.143 MG)
     Route: 042
     Dates: start: 20180525, end: 20180525
  16. DOCETAXEL [Suspect]
     Active Substance: DOCETAXEL
     Dosage: 120 MG EVERY 3 WEEKS (CUMULATIVE DOSE TO FIRST REACTION: 8977.143 MG)
     Route: 042
     Dates: start: 20180525, end: 20180525
  17. DOCETAXEL [Suspect]
     Active Substance: DOCETAXEL
     Dosage: 120 MG EVERY 3 WEEKS (CUMULATIVE DOSE TO FIRST REACTION: 8977.143 MG)
     Route: 042
     Dates: start: 20180525, end: 20180525
  18. DOCETAXEL [Suspect]
     Active Substance: DOCETAXEL
     Dosage: 100 MG EVERY 3 WEEKS
     Route: 042
     Dates: start: 20180615, end: 20180615
  19. DOCETAXEL [Suspect]
     Active Substance: DOCETAXEL
     Dosage: 100 MG EVERY 3 WEEKS
     Route: 042
     Dates: start: 20180615, end: 20180615
  20. DOCETAXEL [Suspect]
     Active Substance: DOCETAXEL
     Dosage: 100 MG EVERY 3 WEEKS
     Route: 042
     Dates: start: 20180615, end: 20180615
  21. DOCETAXEL [Suspect]
     Active Substance: DOCETAXEL
     Dosage: 100 MG EVERY 3 WEEKS
     Route: 042
     Dates: start: 20180615, end: 20180615
  22. ERIBULIN MESYLATE [Suspect]
     Active Substance: ERIBULIN MESYLATE
     Indication: Breast cancer metastatic
     Dosage: 1.23 MG/M2/ DAY 1 AND DAY 8 OF 3 WEEK CYCLE
     Route: 042
     Dates: start: 20210608, end: 20210705
  23. ERIBULIN MESYLATE [Suspect]
     Active Substance: ERIBULIN MESYLATE
     Dosage: 1.23 MG/M2/ DAY 1 AND DAY 8 OF 3 WEEK CYCLE
     Route: 042
     Dates: start: 20210608, end: 20210705
  24. ERIBULIN MESYLATE [Suspect]
     Active Substance: ERIBULIN MESYLATE
     Dosage: 1.67 MG/ DAY 1 AND 8 OF 3 WEEK CYCLE
     Route: 042
     Dates: start: 20210804, end: 20210804
  25. ERIBULIN MESYLATE [Suspect]
     Active Substance: ERIBULIN MESYLATE
     Dosage: 1.67 MG/ DAY 1 AND 8 OF 3 WEEK CYCLE
     Route: 042
     Dates: start: 20210804, end: 20210804
  26. NERATINIB [Suspect]
     Active Substance: NERATINIB
     Indication: Breast cancer metastatic
     Dosage: 240 MG, QD
     Dates: start: 20211223, end: 20220203
  27. PACLITAXEL [Suspect]
     Active Substance: PACLITAXEL
     Indication: Breast cancer metastatic
     Dosage: 80 MG/M2, 1/WEEK
     Route: 042
     Dates: start: 20220324
  28. PERTUZUMAB [Suspect]
     Active Substance: PERTUZUMAB
     Indication: Breast cancer metastatic
     Dosage: 840 MG, LOADING DOSE
     Route: 042
     Dates: start: 20180302, end: 20180302
  29. PERTUZUMAB [Suspect]
     Active Substance: PERTUZUMAB
     Dosage: 840 MG, LOADING DOSE
     Route: 042
     Dates: start: 20180302, end: 20180302
  30. PERTUZUMAB [Suspect]
     Active Substance: PERTUZUMAB
     Dosage: 420 MG EVERY 3 WEEKS
     Route: 042
     Dates: start: 20180323, end: 20181130
  31. PERTUZUMAB [Suspect]
     Active Substance: PERTUZUMAB
     Dosage: 420 MG EVERY 3 WEEKS
     Route: 042
     Dates: start: 20180323, end: 20181130
  32. ADO-TRASTUZUMAB EMTANSINE [Suspect]
     Active Substance: ADO-TRASTUZUMAB EMTANSINE
     Indication: Breast cancer metastatic
     Dosage: 240 MG EVERY 3 WEEKS (CUMULATIVE DOSE TO FIRST REACTION: 15062.381 MG)
     Route: 042
     Dates: start: 20190202, end: 20190406
  33. ADO-TRASTUZUMAB EMTANSINE [Suspect]
     Active Substance: ADO-TRASTUZUMAB EMTANSINE
     Dosage: 240 MG EVERY 3 WEEKS (CUMULATIVE DOSE TO FIRST REACTION: 15062.381 MG)
     Route: 042
     Dates: start: 20190202, end: 20190406
  34. ADO-TRASTUZUMAB EMTANSINE [Suspect]
     Active Substance: ADO-TRASTUZUMAB EMTANSINE
     Dosage: 200 MG EVERY 3 WEEKS
     Route: 042
     Dates: start: 20190427, end: 20190518
  35. ADO-TRASTUZUMAB EMTANSINE [Suspect]
     Active Substance: ADO-TRASTUZUMAB EMTANSINE
     Dosage: 200 MG EVERY 3 WEEKS
     Route: 042
     Dates: start: 20190427, end: 20190518
  36. ADO-TRASTUZUMAB EMTANSINE [Suspect]
     Active Substance: ADO-TRASTUZUMAB EMTANSINE
     Dosage: 160 MG EVERY 3 WEEKS (CUMULATIVE DOSE TO FIRST REACTION: 9081.904 MG)
     Route: 042
     Dates: start: 20190608, end: 20200222
  37. ADO-TRASTUZUMAB EMTANSINE [Suspect]
     Active Substance: ADO-TRASTUZUMAB EMTANSINE
     Dosage: 160 MG EVERY 3 WEEKS (CUMULATIVE DOSE TO FIRST REACTION: 9081.904 MG)
     Route: 042
     Dates: start: 20190608, end: 20200222
  38. CANDESARTAN [Concomitant]
     Active Substance: CANDESARTAN
     Dosage: 4 MG, QD
     Route: 048
     Dates: start: 20210413
  39. CEPHALEXIN [Concomitant]
     Active Substance: CEPHALEXIN
     Dosage: 2 DOSAGE FORM,QD
     Route: 048
     Dates: start: 20190411, end: 20190416
  40. DEXAMETHASONE [Concomitant]
     Active Substance: DEXAMETHASONE
     Dosage: 16 MG, QD
     Route: 048
     Dates: start: 20180323, end: 20180325
  41. DEXAMETHASONE [Concomitant]
     Active Substance: DEXAMETHASONE
     Dosage: 16 MG, QD (CUMULATIVE DOSE TO FIRST REACTION: 25760.0 MG)
     Route: 048
     Dates: start: 20180416, end: 20180418
  42. DEXAMETHASONE [Concomitant]
     Active Substance: DEXAMETHASONE
     Dosage: 16 MG, QD (CUMULATIVE DOSE TO FIRST REACTION: 25472.0 MG)
     Route: 048
     Dates: start: 20180504, end: 20180506
  43. DEXAMETHASONE [Concomitant]
     Active Substance: DEXAMETHASONE
     Dosage: 16 MG, QD (CUMULATIVE DOSE TO FIRST REACTION: 25136.0 MG)
     Route: 048
     Dates: start: 20180525, end: 20180527
  44. FILGRASTIM [Concomitant]
     Active Substance: FILGRASTIM
     Dosage: 300 MICROGRAM, QD
     Route: 058
     Dates: start: 20180324, end: 20180330
  45. FILGRASTIM [Concomitant]
     Active Substance: FILGRASTIM
     Dosage: 300 MICROGRAM, QD (CUMULATIVE DOSE TO FIRST REACTION: 471000.0 UG)
     Route: 058
     Dates: start: 20180526, end: 20180601
  46. FILGRASTIM [Concomitant]
     Active Substance: FILGRASTIM
     Dosage: 300 MICROGRAM, QD (CUMULATIVE DOSE TO FIRST REACTION: 477300.0 UG)
     Route: 058
     Dates: start: 20180505, end: 20180511
  47. FILGRASTIM [Concomitant]
     Active Substance: FILGRASTIM
     Dosage: 300 MICROGRAM, QD (CUMULATIVE DOSE TO FIRST REACTION: 488100.0 UG)
     Route: 058
     Dates: start: 20180330, end: 20180423
  48. HYPROMELLOSES [Concomitant]
     Active Substance: HYPROMELLOSES
     Dosage: 1 DRP, PRN
     Dates: start: 20180615
  49. LEVOFLOXACIN [Concomitant]
     Active Substance: LEVOFLOXACIN
     Dosage: 500 MG, QD
     Route: 048
     Dates: start: 20200205, end: 20200212
  50. LEVOFLOXACIN [Concomitant]
     Active Substance: LEVOFLOXACIN
     Dosage: 1, QD
     Route: 048
     Dates: start: 20180827, end: 20180902
  51. NITROFURANTOIN [Concomitant]
     Active Substance: NITROFURANTOIN
     Indication: Urinary tract infection
     Route: 048
  52. OMEPRAZOLE [Concomitant]
     Active Substance: OMEPRAZOLE
     Indication: Gastrooesophageal reflux disease
     Dosage: 20 MG, QD
     Route: 048
  53. RAMIPRIL [Concomitant]
     Active Substance: RAMIPRIL
     Dosage: 2.5 MG, QD
     Route: 048
     Dates: start: 20210406, end: 20210412

REACTIONS (1)
  - Fall [Unknown]

NARRATIVE: CASE EVENT DATE: 20220912
